FAERS Safety Report 6626834-0 (Version None)
Quarter: 2010Q1

REPORT INFORMATION
  Report Type: 
  Country: None (occurrence: None)
  Receive Date: 20100311
  Receipt Date: 20100225
  Transmission Date: 20100710
  Serious: Yes (Death, Other)
  Sender: FDA-Public Use
  Company Number: GB-RANBAXY-2010RR-32182

PATIENT
  Age: 64 Year
  Sex: Male
  Weight: 85 kg

DRUGS (6)
  1. AMOXICILLIN AND CLAVULANATE POTASSIUM [Suspect]
     Indication: LOWER RESPIRATORY TRACT INFECTION
     Dosage: 1 DF, TID
     Route: 048
     Dates: start: 20100107, end: 20100114
  2. AMOXICILLIN AND CLAVULANATE POTASSIUM [Suspect]
     Dosage: 1 DF, TID
     Route: 048
     Dates: start: 20091116, end: 20091123
  3. BENDROFLUMETHIAZIDE [Concomitant]
     Indication: HYPERTENSION
     Dosage: 2.5 MG, QD
     Route: 048
     Dates: start: 20080926
  4. CLARITHROMYCIN [Concomitant]
     Dosage: 500 MG, BID
     Route: 048
     Dates: start: 20091112, end: 20091122
  5. OMEPRAZOLE [Concomitant]
     Indication: DYSPEPSIA
     Dosage: 20 MG, QD
     Route: 048
     Dates: start: 20100112, end: 20100116
  6. PREDNISOLONE [Concomitant]
     Indication: ARTHROPATHY
     Dosage: 10 MG, QD
     Route: 048
     Dates: start: 20091203

REACTIONS (11)
  - ABDOMINAL PAIN UPPER [None]
  - CARDIAC ARREST [None]
  - DECREASED APPETITE [None]
  - DISSEMINATED INTRAVASCULAR COAGULATION [None]
  - HAEMODIALYSIS [None]
  - HEPATOMEGALY [None]
  - HYPERKALAEMIA [None]
  - LIVER FUNCTION TEST ABNORMAL [None]
  - LIVER INJURY [None]
  - METABOLIC ACIDOSIS [None]
  - MIDDLE INSOMNIA [None]
